FAERS Safety Report 20801530 (Version 1)
Quarter: 2022Q2

REPORT INFORMATION
  Report Type: Spontaneous
  Country: US (occurrence: None)
  Receive Date: 20220506
  Receipt Date: 20220506
  Transmission Date: 20220721
  Serious: Yes (Death)
  Sender: FDA-Public Use
  Company Number: None

PATIENT
  Age: 77 Year
  Sex: Female

DRUGS (23)
  1. OPSUMIT [Suspect]
     Active Substance: MACITENTAN
     Indication: Pulmonary arterial hypertension
     Dosage: FREQUENCY : DAILY;?
     Route: 048
     Dates: start: 20170317, end: 20220424
  2. SILDENAFIL [Concomitant]
     Active Substance: SILDENAFIL
  3. TYVASO [Concomitant]
     Active Substance: TREPROSTINIL
  4. METOLAZONE [Concomitant]
     Active Substance: METOLAZONE
  5. ATENOLOL [Concomitant]
     Active Substance: ATENOLOL
  6. HUMULIN N [Concomitant]
     Active Substance: INSULIN HUMAN
  7. HUMULIN R [Concomitant]
     Active Substance: INSULIN HUMAN
  8. CELLCEPT [Concomitant]
     Active Substance: MYCOPHENOLATE MOFETIL
  9. FUROSEMIDE [Concomitant]
     Active Substance: FUROSEMIDE
  10. SPIRONOLACTONE [Concomitant]
     Active Substance: SPIRONOLACTONE
  11. OMEPRAZOLE [Concomitant]
     Active Substance: OMEPRAZOLE
  12. VITAMIN D3 [Concomitant]
     Active Substance: CHOLECALCIFEROL
  13. METFORMIN [Concomitant]
     Active Substance: METFORMIN HYDROCHLORIDE
  14. LORAZEPAM [Concomitant]
     Active Substance: LORAZEPAM
  15. ROXANOL [Concomitant]
     Active Substance: MORPHINE SULFATE
  16. OXYGEN INTRANASAL [Concomitant]
  17. SORBITOL [Concomitant]
     Active Substance: SORBITOL
  18. FERROUS SULFATE [Concomitant]
     Active Substance: FERROUS SULFATE
  19. ONDANSETRON [Concomitant]
     Active Substance: ONDANSETRON
  20. HYOSCYAMINE [Concomitant]
     Active Substance: HYOSCYAMINE
  21. HALDOL [Concomitant]
     Active Substance: HALOPERIDOL
  22. BISACODYL [Concomitant]
     Active Substance: BISACODYL
  23. TYLENOL [Concomitant]
     Active Substance: ACETAMINOPHEN

REACTIONS (2)
  - Interstitial lung disease [None]
  - Disease progression [None]

NARRATIVE: CASE EVENT DATE: 20220424
